FAERS Safety Report 7528194-X (Version None)
Quarter: 2011Q2

REPORT INFORMATION
  Report Type: 
  Country: None (occurrence: None)
  Receive Date: 20110607
  Receipt Date: 20100512
  Transmission Date: 20111010
  Serious: No
  Sender: FDA-Public Use
  Company Number: US-ASTRAZENECA-2010SE12499

PATIENT
  Age: 82 Year
  Sex: Male
  Weight: 77.1 kg

DRUGS (4)
  1. MAXFLOW [Concomitant]
  2. CARDURA [Concomitant]
  3. RANITIDINE [Concomitant]
  4. PRILOSEC [Suspect]
     Route: 048

REACTIONS (3)
  - DYSSTASIA [None]
  - ARTHRITIS [None]
  - ABASIA [None]
